FAERS Safety Report 16462366 (Version 2)
Quarter: 2019Q3

REPORT INFORMATION
  Report Type: Spontaneous
  Country: JP (occurrence: JP)
  Receive Date: 20190621
  Receipt Date: 20190704
  Transmission Date: 20191004
  Serious: Yes (Other)
  Sender: FDA-Public Use
  Company Number: JP-PFIZER INC-2019258731

PATIENT
  Age: 9 Decade
  Sex: Male

DRUGS (2)
  1. INLYTA [Suspect]
     Active Substance: AXITINIB
     Dosage: 6 MG, DAILY
  2. INLYTA [Suspect]
     Active Substance: AXITINIB
     Dosage: 2 MG, DAILY

REACTIONS (5)
  - White blood cell count decreased [Recovered/Resolved]
  - Hypertension [Unknown]
  - Bone marrow failure [Unknown]
  - Haemarthrosis [Unknown]
  - Pyrexia [Unknown]
